FAERS Safety Report 15103692 (Version 1)
Quarter: 2018Q3

REPORT INFORMATION
  Report Type: Spontaneous
  Country: US (occurrence: US)
  Receive Date: 20180703
  Receipt Date: 20180703
  Transmission Date: 20181010
  Serious: Yes (Hospitalization, Other)
  Sender: FDA-Public Use
  Company Number: US-SHIRE-US201822708

PATIENT
  Sex: Female
  Weight: 98.63 kg

DRUGS (1)
  1. GATTEX [Suspect]
     Active Substance: TEDUGLUTIDE\WATER
     Indication: PRODUCT USED FOR UNKNOWN INDICATION
     Dosage: UNK, 1X/DAY:QD (DOSE: 0.247)
     Route: 065
     Dates: start: 20180515, end: 20180619

REACTIONS (2)
  - Intestinal obstruction [Unknown]
  - Pancreatitis [Unknown]

NARRATIVE: CASE EVENT DATE: 20180619
